FAERS Safety Report 13943712 (Version 3)
Quarter: 2017Q3

REPORT INFORMATION
  Report Type: Spontaneous
  Country: JP (occurrence: JP)
  Receive Date: 20170907
  Receipt Date: 20170915
  Transmission Date: 20171128
  Serious: Yes (Death, Hospitalization, Other)
  Sender: FDA-Public Use
  Company Number: JP-TAKEDA-2017TJP013124

PATIENT
  Age: 33 Year
  Sex: Female

DRUGS (12)
  1. ANASTROZOLE. [Concomitant]
     Active Substance: ANASTROZOLE
     Dosage: 1 MG, QD
     Route: 048
  2. NESINA [Suspect]
     Active Substance: ALOGLIPTIN BENZOATE
     Indication: PRODUCT USED FOR UNKNOWN INDICATION
     Dosage: 25 MG, QD
     Route: 048
  3. LUNETORON [Concomitant]
     Active Substance: BUMETANIDE
     Dosage: 1 MG, QD
     Route: 048
  4. TRAMCET [Concomitant]
     Active Substance: ACETAMINOPHEN\TRAMADOL
     Dosage: 1 DF, QID
     Route: 048
  5. FENTOS [Concomitant]
     Active Substance: FENTANYL
     Dosage: 1 MG, UNK
     Route: 062
     Dates: start: 20170613
  6. ELIETEN                            /00041902/ [Concomitant]
     Dosage: 10 MG, QD
     Route: 041
     Dates: start: 20170610, end: 20170610
  7. LEUPLIN PRO FOR INJECTION KIT 22.5MG. [Suspect]
     Active Substance: LEUPROLIDE ACETATE
     Indication: BREAST CANCER FEMALE
     Dosage: 22.5 MG, Q6MONTHS
     Route: 058
     Dates: start: 20160217, end: 20160217
  8. LEUPLIN PRO FOR INJECTION KIT 22.5MG. [Suspect]
     Active Substance: LEUPROLIDE ACETATE
     Dosage: 22.5 MG, Q6MONTHS
     Route: 058
     Dates: start: 20170615, end: 20170615
  9. TS-1 [Concomitant]
     Active Substance: GIMERACIL\OTERACIL\TEGAFUR
     Dosage: 60 MG, BID
     Route: 048
     Dates: end: 20170612
  10. FRUCTLACT [Concomitant]
     Dosage: 200 ML, QD
     Route: 041
     Dates: start: 20170609, end: 20170609
  11. LEVOFLOXACIN HEMIHYDRATE [Concomitant]
     Active Substance: LEVOFLOXACIN
     Dosage: 500 MG, QD
     Route: 048
     Dates: start: 20170626
  12. FENTOS [Concomitant]
     Active Substance: FENTANYL
     Dosage: 2 MG, UNK
     Route: 062
     Dates: start: 20170614

REACTIONS (11)
  - Breast enlargement [Unknown]
  - Malignant pleural effusion [Fatal]
  - Type 2 diabetes mellitus [Unknown]
  - Condition aggravated [Fatal]
  - Pyrexia [Unknown]
  - Malignant pleural effusion [Fatal]
  - Dyspnoea [Unknown]
  - Oedema due to renal disease [Unknown]
  - Haemorrhoids [Unknown]
  - Lymphangioma [Fatal]
  - Malignant pleural effusion [Unknown]

NARRATIVE: CASE EVENT DATE: 20160615
